FAERS Safety Report 10203059 (Version 1)
Quarter: 2014Q2

REPORT INFORMATION
  Report Type: Spontaneous
  Country: GB (occurrence: GB)
  Receive Date: 20140529
  Receipt Date: 20140529
  Transmission Date: 20141212
  Serious: Yes (Other)
  Sender: FDA-Public Use
  Company Number: GB-MYLANLABS-2014S1011440

PATIENT
  Age: 54 Year
  Sex: Female
  Weight: 80 kg

DRUGS (8)
  1. DOXYCYCLINE [Suspect]
     Dates: start: 20140204
  2. AMOXICILLIN [Concomitant]
     Dates: start: 20140428
  3. ERYTHROMYCIN [Concomitant]
     Dates: start: 20140502
  4. LEVOTHYROXINE [Concomitant]
     Dates: start: 20131112, end: 20140204
  5. LEVOTHYROXINE [Concomitant]
     Dates: start: 20140224
  6. MEBEVERINE HYDROCHLORIDE [Concomitant]
     Dates: start: 20140224, end: 20140324
  7. MUCOPOLYSACCHARIDES W/PARACETAMOL/PINUS SYLVE [Concomitant]
     Dates: start: 20140317, end: 20140322
  8. MUPIROCIN [Concomitant]
     Dates: start: 20140204, end: 20140205

REACTIONS (1)
  - Mouth swelling [Recovering/Resolving]
